FAERS Safety Report 4505449-4 (Version None)
Quarter: 2004Q4

REPORT INFORMATION
  Report Type: 
  Country: None (occurrence: None)
  Receive Date: 20041116
  Receipt Date: 20041104
  Transmission Date: 20050328
  Serious: Yes (Other)
  Sender: FDA-Public Use
  Company Number: 209199

PATIENT
  Age: 53 Year
  Sex: Male

DRUGS (5)
  1. MABTHERA (RITUXIMAB) CONC FOR SOLUTION [Suspect]
     Indication: NON-HODGKIN'S LYMPHOMA
     Dates: end: 20040914
  2. CYCLOPHOSPHAMIDE [Concomitant]
  3. VINCRISTINE [Concomitant]
  4. PREDNISONE [Concomitant]
  5. DOXORUBICIN (DOXORUBICIN, DOXORUBICIN HYDROCHLORIDE) [Concomitant]

REACTIONS (2)
  - ANTIBODY TEST POSITIVE [None]
  - NEUTROPENIA [None]
